FAERS Safety Report 8482170-1 (Version None)
Quarter: 2012Q3

REPORT INFORMATION
  Report Type: 
  Country: None (occurrence: None)
  Receive Date: 20120702
  Receipt Date: 20120619
  Transmission Date: 20120928
  Serious: Yes (Hospitalization, Disabling, Other)
  Sender: FDA-Public Use
  Company Number: PL-BAYER-2012-060706

PATIENT
  Age: 63 Year
  Sex: Male

DRUGS (9)
  1. ZYRTEC [Concomitant]
     Indication: PHOTODERMATOSIS
     Dosage: 10 MG DAILY DOSE
     Route: 048
     Dates: start: 19800101
  2. ENOXAPARIN SODIUM [Concomitant]
     Indication: CHOLANGITIS
     Dosage: 40 MG DAILY DOSE
     Route: 058
     Dates: start: 20111201, end: 20111210
  3. CIPROFLOXACIN HCL [Concomitant]
     Dosage: 1000 MG DAILY DOSE
     Route: 048
     Dates: start: 20120426, end: 20120524
  4. SORAFENIB (RAF KINASE INHIBITOR) [Suspect]
     Indication: METASTATIC RENAL CELL CARCINOMA
     Dosage: 400 MG, QD
     Route: 048
     Dates: start: 20120107, end: 20120514
  5. HEPA-MERZ [ORNITHINE ASPARTATE] [Concomitant]
     Indication: CHOLANGITIS
     Dosage: 10 MG DAILY DOSE
     Route: 042
     Dates: start: 20111201, end: 20111210
  6. GLUCOSE INJECTION [Concomitant]
     Indication: CHOLANGITIS
     Dosage: 500 ML DAILY DOSE
     Route: 042
     Dates: start: 20111201, end: 20111210
  7. GALEC 20 [Concomitant]
     Indication: PROPHYLAXIS
     Dosage: 20 MG DAILY DOSE
     Route: 048
     Dates: start: 20120509
  8. BIOTRAKSON [Concomitant]
     Indication: CHOLANGITIS
     Dosage: 2 G DAILY DOSE
     Route: 042
     Dates: start: 20111201, end: 20111210
  9. CIPROFLOXACIN HCL [Concomitant]
     Indication: CHOLANGITIS
     Dosage: 1000 MG DAILY DOSE
     Route: 048
     Dates: start: 20111201, end: 20111210

REACTIONS (2)
  - MALIGNANT NEOPLASM OF AMPULLA OF VATER [None]
  - JAUNDICE CHOLESTATIC [None]
